FAERS Safety Report 22399631 (Version 1)
Quarter: 2023Q2

REPORT INFORMATION
  Report Type: Spontaneous
  Country: IN (occurrence: IN)
  Receive Date: 20230602
  Receipt Date: 20230602
  Transmission Date: 20230722
  Serious: Yes (Other)
  Sender: FDA-Public Use
  Company Number: IN-IGSA-BIG0023545

PATIENT
  Age: 2 Year
  Sex: Male

DRUGS (1)
  1. ANTIHEMOPHILIC FACTOR HUMAN [Suspect]
     Active Substance: ANTIHEMOPHILIC FACTOR HUMAN
     Indication: Factor VIII deficiency
     Dosage: UNK UNKNOWN, UNKNOWN
     Route: 042

REACTIONS (8)
  - Anti factor VIII antibody positive [Unknown]
  - Nephrotic syndrome [Recovered/Resolved]
  - Swelling of eyelid [Recovered/Resolved]
  - Peripheral swelling [Recovered/Resolved]
  - Urine output decreased [Recovered/Resolved]
  - Hypoalbuminaemia [Recovered/Resolved]
  - Hypercholesterolaemia [Recovered/Resolved]
  - Proteinuria [Recovered/Resolved]
